FAERS Safety Report 5719906-6 (Version None)
Quarter: 2008Q2

REPORT INFORMATION
  Report Type: 
  Country: None (occurrence: None)
  Receive Date: 20080428
  Receipt Date: 20080427
  Transmission Date: 20081010
  Serious: Yes (Death)
  Sender: FDA-Public Use
  Company Number: US-ABBOTT-08P-163-0444436-00

PATIENT
  Sex: Female
  Weight: 60.78 kg

DRUGS (15)
  1. VICODIN ES [Suspect]
     Indication: PAIN
     Route: 048
  2. OPANA ER [Suspect]
     Indication: PAIN
     Route: 048
     Dates: start: 20070407, end: 20070510
  3. OPANA ER [Suspect]
     Route: 048
     Dates: start: 20070509, end: 20070510
  4. OPANA [Suspect]
     Indication: BREAKTHROUGH PAIN
     Route: 048
     Dates: start: 20070407, end: 20070510
  5. FENTANYL CITRATE [Suspect]
     Indication: DEPRESSION
     Route: 062
     Dates: start: 20070401, end: 20070510
  6. AMITRIPTYLINE HCL [Suspect]
     Indication: DEPRESSION
     Route: 048
     Dates: end: 20070510
  7. SERTRALINE [Suspect]
     Indication: DEPRESSION
     Route: 048
     Dates: end: 20070510
  8. MODAFINIL [Suspect]
     Indication: DRUG USE FOR UNKNOWN INDICATION
     Route: 065
     Dates: end: 20070510
  9. LEVOTHYROXINE SODIUM [Suspect]
     Indication: DRUG USE FOR UNKNOWN INDICATION
     Route: 048
     Dates: end: 20070510
  10. LUNESTA [Suspect]
     Indication: DRUG USE FOR UNKNOWN INDICATION
     Route: 048
     Dates: end: 20070510
  11. CLONAZEPAM [Suspect]
     Indication: DRUG USE FOR UNKNOWN INDICATION
     Route: 048
     Dates: end: 20070510
  12. LEFLUNOMIDE [Concomitant]
     Indication: RHEUMATOID ARTHRITIS
     Route: 065
     Dates: end: 20070401
  13. FENTANYL CITRATE [Concomitant]
     Indication: DRUG USE FOR UNKNOWN INDICATION
  14. LEVOTHYROXINE SODIUM [Concomitant]
     Indication: DRUG USE FOR UNKNOWN INDICATION
  15. LEFLUNOMIDE [Concomitant]
     Indication: DRUG USE FOR UNKNOWN INDICATION

REACTIONS (2)
  - DRUG INEFFECTIVE [None]
  - DRUG TOXICITY [None]
